FAERS Safety Report 14044124 (Version 1)
Quarter: 2017Q4

REPORT INFORMATION
  Report Type: Spontaneous
  Country: US (occurrence: US)
  Receive Date: 20171004
  Receipt Date: 20171004
  Transmission Date: 20180321
  Serious: Yes (Hospitalization, Disabling)
  Sender: FDA-Public Use
  Company Number: None

PATIENT
  Age: 59 Year
  Sex: Female
  Weight: 98.1 kg

DRUGS (22)
  1. VITAMIN D3 [Concomitant]
     Active Substance: CHOLECALCIFEROL
  2. REFRESH TEARS PLUS EYE DROPS [Concomitant]
  3. DULOXETINE HCL [Suspect]
     Active Substance: DULOXETINE HYDROCHLORIDE
     Indication: DEPRESSION
     Dosage: ?          QUANTITY:2 CAPSULE(S);?
     Route: 048
     Dates: start: 20170928, end: 20171001
  4. CYMBALTA [Concomitant]
     Active Substance: DULOXETINE HYDROCHLORIDE
  5. IBUPROFEN. [Concomitant]
     Active Substance: IBUPROFEN
  6. DEXTROAMPHETAMINE SULFATE (DEXADRINE) [Concomitant]
  7. ZAND ZINC LOZENGES [Concomitant]
  8. CALCIUM CARBONATE. [Concomitant]
     Active Substance: CALCIUM CARBONATE
  9. CYRODERM [Concomitant]
  10. VOLTAREN [Concomitant]
     Active Substance: DICLOFENAC SODIUM
  11. MSM [Concomitant]
     Active Substance: DIMETHYL SULFONE
  12. GLUCOSAMINE SULFATE [Concomitant]
     Active Substance: GLUCOSAMINE SULFATE
  13. LIQUID-B COMPLEX [Concomitant]
  14. MELATONIN [Concomitant]
     Active Substance: MELATONIN
  15. LUNESTA [Concomitant]
     Active Substance: ESZOPICLONE
  16. DICLOFENAC SODIUM. [Concomitant]
     Active Substance: DICLOFENAC SODIUM
  17. DGL (DEGLYCYRRHIZINATED LICORICE ROOT EXTRACT) [Concomitant]
  18. XYZAL LEVOCETIRIZINE DIHYDROCHLORIDE [Concomitant]
  19. HYDROCO/APAP [Concomitant]
     Active Substance: ACETAMINOPHEN\HYDROCODONE
  20. YUVAFEM ESTRADIOL [Concomitant]
  21. SALINE NASAL SPRAY [Concomitant]
     Active Substance: SODIUM CHLORIDE
  22. EMERGEN-C [Concomitant]
     Active Substance: VITAMINS

REACTIONS (10)
  - Cardiac disorder [None]
  - Therapy change [None]
  - Condition aggravated [None]
  - Chest pain [None]
  - Hypertension [None]
  - Heart rate increased [None]
  - Headache [None]
  - Pulse abnormal [None]
  - Eye haemorrhage [None]
  - Cardiac murmur [None]

NARRATIVE: CASE EVENT DATE: 20170930
